FAERS Safety Report 6207654-8 (Version None)
Quarter: 2009Q2

REPORT INFORMATION
  Report Type: 
  Country: None (occurrence: None)
  Receive Date: 20090528
  Receipt Date: 20090511
  Transmission Date: 20091009
  Serious: Yes (Other)
  Sender: FDA-Public Use
  Company Number: FR-SANOFI-SYNTHELABO-A02200901279

PATIENT

DRUGS (1)
  1. PLAVIX [Suspect]
     Indication: ARTERIAL DISORDER
     Dosage: UNK
     Route: 048

REACTIONS (1)
  - ARTERIAL STENOSIS [None]
